FAERS Safety Report 7260714-5 (Version None)
Quarter: 2011Q1

REPORT INFORMATION
  Report Type: 
  Country: None (occurrence: None)
  Receive Date: 20110130
  Receipt Date: 20101111
  Transmission Date: 20110831
  Serious: No
  Sender: FDA-Public Use
  Company Number: US-ABBOTT-10P-163-0684861-00

PATIENT
  Age: 43 Year
  Sex: Male

DRUGS (6)
  1. LYRICA [Concomitant]
     Indication: PSORIATIC ARTHROPATHY
  2. LYRICA [Concomitant]
     Indication: PAIN
  3. HUMIRA [Suspect]
     Indication: PSORIATIC ARTHROPATHY
     Dates: start: 20100601
  4. DARVOCET-N 100 [Concomitant]
     Indication: PAIN
     Dosage: 100/650
  5. LISINOPRIL [Concomitant]
     Indication: BLOOD PRESSURE INCREASED
  6. BC HEADACHE POWDER [Concomitant]
     Indication: PAIN

REACTIONS (1)
  - INSOMNIA [None]
